FAERS Safety Report 9660029 (Version 1)
Quarter: 2013Q4

REPORT INFORMATION
  Report Type: Spontaneous
  Country: US (occurrence: US)
  Receive Date: 20131031
  Receipt Date: 20131031
  Transmission Date: 20140711
  Serious: Yes (Other)
  Sender: FDA-Public Use
  Company Number: US-BAYER-2013-131871

PATIENT
  Age: 29 Year
  Sex: Female
  Weight: 88.89 kg

DRUGS (3)
  1. MIRENA [Suspect]
     Indication: CONTRACEPTION
     Dosage: 24 MCG/24HR, CONT
     Route: 015
     Dates: start: 20080427, end: 20090116
  2. ALBUTEROL [Concomitant]
     Dosage: UNK
     Dates: start: 2008
  3. ASMANEX [Concomitant]

REACTIONS (1)
  - Uterine perforation [None]
